FAERS Safety Report 10807331 (Version 1)
Quarter: 2015Q1

REPORT INFORMATION
  Report Type: Report from Study
  Country: US (occurrence: US)
  Receive Date: 20150217
  Receipt Date: 20150217
  Transmission Date: 20150721
  Serious: No
  Sender: FDA-Public Use
  Company Number: US-ABBVIE-14K-163-1228210-00

PATIENT
  Age: 23 Year
  Sex: Female

DRUGS (3)
  1. APRI [Concomitant]
     Active Substance: DESOGESTREL\ETHINYL ESTRADIOL
     Indication: CONTRACEPTION
     Dates: start: 201310
  2. HUMIRA [Suspect]
     Active Substance: ADALIMUMAB
     Indication: COLITIS ULCERATIVE
     Dates: start: 20130611
  3. NECON [Suspect]
     Active Substance: ETHINYL ESTRADIOL\NORETHINDRONE
     Indication: CONTRACEPTION
     Dates: start: 201308, end: 201310

REACTIONS (5)
  - Wrong technique in drug usage process [Unknown]
  - Emotional disorder [Recovering/Resolving]
  - Incorrect dose administered [Unknown]
  - Depression [Recovering/Resolving]
  - Injection site pain [Recovered/Resolved]

NARRATIVE: CASE EVENT DATE: 201309
